FAERS Safety Report 24125055 (Version 1)
Quarter: 2024Q3

REPORT INFORMATION
  Report Type: Spontaneous
  Country: CA (occurrence: CA)
  Receive Date: 20240723
  Receipt Date: 20240723
  Transmission Date: 20241016
  Serious: Yes (Other)
  Sender: CELLTRION
  Company Number: CA-CELLTRION INC.-2020CA035362

PATIENT
  Age: 62 Year
  Sex: Male

DRUGS (6)
  1. TRUXIMA [Suspect]
     Active Substance: RITUXIMAB-ABBS
     Indication: Rheumatoid arthritis
     Dosage: 1000 MG (DAY 1)
     Route: 042
     Dates: start: 20200731
  2. TRUXIMA [Suspect]
     Active Substance: RITUXIMAB-ABBS
     Dosage: 1000 MG (DAY 1 AND DAY 15)
     Route: 042
  3. TRUXIMA [Suspect]
     Active Substance: RITUXIMAB-ABBS
     Dosage: 1000 MG Q2 WEEKS; INFUSION #6
     Route: 042
     Dates: start: 20200731
  4. TRUXIMA [Suspect]
     Active Substance: RITUXIMAB-ABBS
     Dosage: 1000 MG (INFUSION 3)
     Route: 042
     Dates: start: 20200731, end: 20210129
  5. TRUXIMA [Suspect]
     Active Substance: RITUXIMAB-ABBS
     Dosage: UNK
     Dates: start: 20211007
  6. TRUXIMA [Suspect]
     Active Substance: RITUXIMAB-ABBS
     Dosage: UNK
     Dates: start: 20211021

REACTIONS (19)
  - Eye haemorrhage [Unknown]
  - Blood pressure increased [Unknown]
  - Pulse abnormal [Unknown]
  - Joint swelling [Unknown]
  - Diplopia [Not Recovered/Not Resolved]
  - Capillary nail refill test abnormal [Unknown]
  - Swelling [Unknown]
  - Oedema peripheral [Unknown]
  - Blood pressure abnormal [Unknown]
  - Flushing [Unknown]
  - Fatigue [Unknown]
  - Visual impairment [Recovered/Resolved]
  - Pain [Unknown]
  - Arthralgia [Unknown]
  - Arthralgia [Unknown]
  - Drug ineffective [Not Recovered/Not Resolved]
  - Product prescribing issue [Unknown]
  - Off label use [Unknown]
  - Off label use [Unknown]

NARRATIVE: CASE EVENT DATE: 20200803
